FAERS Safety Report 17164162 (Version 2)
Quarter: 2019Q4

REPORT INFORMATION
  Report Type: Spontaneous
  Country: US (occurrence: US)
  Receive Date: 20191217
  Receipt Date: 20191218
  Transmission Date: 20200122
  Serious: Yes (Other)
  Sender: FDA-Public Use
  Company Number: US-SUPERNUS PHARMACEUTICALS, INC.-2019SUP00508

PATIENT
  Age: 27 Year
  Sex: Female
  Weight: 69.84 kg

DRUGS (7)
  1. TROKENDI XR [Suspect]
     Active Substance: TOPIRAMATE
     Indication: HEADACHE
     Dosage: 25 MG, 1X/DAY AT 6 AM
     Route: 048
     Dates: start: 2019, end: 201903
  2. PHENTERMINE. [Concomitant]
     Active Substance: PHENTERMINE
     Dosage: 0.5 TABLETS, 1X/DAY
  3. TROKENDI XR [Suspect]
     Active Substance: TOPIRAMATE
     Dosage: 25 MG (ONLY TAKES IT OCCASSIONALLY; WILL STOP IT FOR 4 TO 5 DAYS AND THEN START TAKING IT AGAIN)
     Route: 048
     Dates: start: 201903
  4. TROKENDI XR [Suspect]
     Active Substance: TOPIRAMATE
     Indication: WEIGHT INCREASED
     Dosage: 25 MG, 1X/DAY AT 6 AM
     Route: 048
     Dates: start: 201809, end: 2018
  5. TROKENDI XR [Suspect]
     Active Substance: TOPIRAMATE
     Indication: WEIGHT INCREASED
     Dosage: 50 MG, 1X/DAY AT ABOUT 6 AM
     Route: 048
     Dates: start: 2018, end: 2019
  6. TROKENDI XR [Suspect]
     Active Substance: TOPIRAMATE
     Indication: HEADACHE
  7. BETAMETHASONE. [Suspect]
     Active Substance: BETAMETHASONE
     Dosage: 7 MG, ONCE
     Dates: start: 201908, end: 201908

REACTIONS (10)
  - Off label use [Not Recovered/Not Resolved]
  - Muscle contractions involuntary [Recovering/Resolving]
  - Weight decreased [Unknown]
  - Paraesthesia [Recovering/Resolving]
  - Pain in extremity [Recovering/Resolving]
  - Sinus disorder [Recovered/Resolved]
  - Muscle twitching [Recovering/Resolving]
  - Dysarthria [Recovered/Resolved]
  - Rhinorrhoea [Recovered/Resolved]
  - Muscle spasms [Recovering/Resolving]

NARRATIVE: CASE EVENT DATE: 201809
